FAERS Safety Report 8399960-6 (Version None)
Quarter: 2012Q2

REPORT INFORMATION
  Report Type: 
  Country: None (occurrence: None)
  Receive Date: 20120531
  Receipt Date: 20120522
  Transmission Date: 20120825
  Serious: Yes (Other)
  Sender: FDA-Public Use
  Company Number: US-BAYER-2012-051577

PATIENT
  Age: 80 Year
  Sex: Female
  Weight: 72.562 kg

DRUGS (3)
  1. EVENING PRIMROSE OIL [Concomitant]
  2. MULTI-VITAMIN [Concomitant]
  3. ALEVE (CAPLET) [Suspect]
     Indication: ANALGESIC THERAPY
     Dosage: 1 DF EVERY 12 HOURS, BOTTLE COUNT 130CT
     Route: 048
     Dates: start: 20120518, end: 20120518

REACTIONS (4)
  - OROPHARYNGEAL PAIN [None]
  - DYSPHAGIA [None]
  - PHARYNGEAL DISORDER [None]
  - DYSPHONIA [None]
